FAERS Safety Report 12472239 (Version 1)
Quarter: 2016Q2

REPORT INFORMATION
  Report Type: Spontaneous
  Country: GB (occurrence: GB)
  Receive Date: 20160616
  Receipt Date: 20160616
  Transmission Date: 20160815
  Serious: Yes (Other)
  Sender: FDA-Public Use
  Company Number: GB-TEVA-667069ACC

PATIENT
  Age: 80 Year
  Sex: Female
  Weight: 91 kg

DRUGS (15)
  1. CODEINE PHOSPHATE [Concomitant]
     Active Substance: CODEINE PHOSPHATE
     Dosage: 15 ML DAILY;
     Dates: start: 20160401, end: 20160411
  2. LOSARTAN. [Concomitant]
     Active Substance: LOSARTAN
     Dosage: 1 DOSAGE FORMS DAILY;
     Dates: start: 20140704
  3. SIRDUPLA [Concomitant]
     Dosage: 4 DOSAGE FORMS DAILY;
     Route: 055
     Dates: start: 20160411, end: 20160509
  4. CLARITHROMYCIN. [Concomitant]
     Active Substance: CLARITHROMYCIN
     Dosage: 2 DOSAGE FORMS DAILY;
     Dates: start: 20160419, end: 20160426
  5. DAKTACORT [Concomitant]
     Active Substance: HYDROCORTISONE\MICONAZOLE NITRATE
     Dosage: 2 DOSAGE FORMS DAILY;
     Dates: start: 20140611
  6. CLENIL MODULITE [Concomitant]
     Active Substance: BECLOMETHASONE DIPROPIONATE
     Dosage: 4 DOSAGE FORMS DAILY;
     Dates: start: 20140911
  7. LAXIDO [Concomitant]
     Active Substance: POLYETHYLENE GLYCOL 3350\POTASSIUM CHLORIDE\SODIUM BICARBONATE\SODIUM CHLORIDE
     Dosage: TAKE ONE OR TWO SACHETS DAILY DISSOLVED IN 125M...
     Dates: start: 20160316, end: 20160330
  8. SITAGLIPTIN [Concomitant]
     Active Substance: SITAGLIPTIN
     Indication: DIABETES MELLITUS
     Dosage: 1 DOSAGE FORMS DAILY;
     Dates: start: 20150331
  9. VENTOLIN [Concomitant]
     Active Substance: ALBUTEROL SULFATE
     Dosage: 1 TO 2 PUFFS UP TO FOUR TIMES DAILY AS REQUIRED
     Dates: start: 20140116
  10. SIMVASTATIN. [Concomitant]
     Active Substance: SIMVASTATIN
     Dosage: 1 DOSAGE FORMS DAILY; NOCTE
     Dates: start: 20140514
  11. FENBID [Concomitant]
     Active Substance: IBUPROFEN
     Dosage: 3 DOSAGE FORMS DAILY;
     Dates: start: 20151120
  12. NITROFURANTOIN. [Suspect]
     Active Substance: NITROFURANTOIN
     Dates: start: 20151120
  13. GLICLAZIDE [Concomitant]
     Active Substance: GLICLAZIDE
     Dosage: .5 DOSAGE FORMS DAILY; AT LUNCH TIME
     Dates: start: 20151223
  14. LEVOTHYROXINE. [Concomitant]
     Active Substance: LEVOTHYROXINE
     Dosage: 1 DOSAGE FORMS DAILY;
     Dates: start: 20131126
  15. PARACETAMOL [Concomitant]
     Active Substance: ACETAMINOPHEN
     Dosage: ONE TO TWO TO BE TAKEN FOUR TIMES A DAY AS REQU...
     Dates: start: 20150623, end: 20160523

REACTIONS (1)
  - Interstitial lung disease [Recovering/Resolving]

NARRATIVE: CASE EVENT DATE: 20160526
